FAERS Safety Report 19614481 (Version 1)
Quarter: 2021Q3

REPORT INFORMATION
  Report Type: Spontaneous
  Country: US (occurrence: US)
  Receive Date: 20210727
  Receipt Date: 20210727
  Transmission Date: 20211014
  Serious: Yes (Life-Threatening, Hospitalization)
  Sender: FDA-Public Use
  Company Number: US-MYLANLABS-2021M1046074

PATIENT
  Age: 66 Year
  Sex: Male

DRUGS (3)
  1. CALCIUM FOLINATE [Suspect]
     Active Substance: LEUCOVORIN CALCIUM
     Indication: OESOPHAGEAL CANCER METASTATIC
     Dosage: FOLFOX REGIMEN; SINGLE COURSE
     Route: 065
  2. FLUOROURACIL. [Suspect]
     Active Substance: FLUOROURACIL
     Indication: OESOPHAGEAL CANCER METASTATIC
     Dosage: FOLFOX REGIMEN; SINGLE COURSE
     Route: 065
  3. OXALIPLATIN. [Suspect]
     Active Substance: OXALIPLATIN
     Indication: OESOPHAGEAL CANCER METASTATIC
     Dosage: FOLFOX REGIMEN; SINGLE COURSE
     Route: 065

REACTIONS (3)
  - Respiratory distress [Recovering/Resolving]
  - Tumour necrosis [Recovering/Resolving]
  - Soft tissue swelling [Recovering/Resolving]
